FAERS Safety Report 11287497 (Version 1)
Quarter: 2015Q3

REPORT INFORMATION
  Report Type: Spontaneous
  Country: AU (occurrence: AU)
  Receive Date: 20150721
  Receipt Date: 20150721
  Transmission Date: 20151125
  Serious: Yes (Other)
  Sender: FDA-Public Use
  Company Number: AU-ACTAVIS PTY LTD-2015-14674

PATIENT
  Age: 22 Year
  Sex: Male

DRUGS (1)
  1. METOPROLOL (UNKNOWN) [Suspect]
     Active Substance: METOPROLOL
     Indication: ATRIAL FIBRILLATION
     Dosage: UNK
     Route: 048

REACTIONS (1)
  - Tachycardia [Recovered/Resolved]
